FAERS Safety Report 6378511-1 (Version None)
Quarter: 2009Q3

REPORT INFORMATION
  Report Type: 
  Country: None (occurrence: None)
  Receive Date: 20090928
  Receipt Date: 20090916
  Transmission Date: 20100115
  Serious: Yes (Hospitalization, Other)
  Sender: FDA-Public Use
  Company Number: US-BIOGENIDEC-2009BI030095

PATIENT
  Age: 51 Year
  Sex: Female

DRUGS (4)
  1. AVONEX [Suspect]
     Indication: MULTIPLE SCLEROSIS
     Route: 030
     Dates: start: 20010215, end: 20090101
  2. CHEMOTHERAPY (NOS) [Concomitant]
     Indication: MULTIPLE SCLEROSIS
  3. CYTOXAN [Concomitant]
     Indication: DRUG USE FOR UNKNOWN INDICATION
  4. CYTOVENE [Concomitant]
     Indication: DRUG USE FOR UNKNOWN INDICATION

REACTIONS (4)
  - CARDIAC FAILURE CONGESTIVE [None]
  - CONVULSION [None]
  - MYOCARDIAL INFARCTION [None]
  - RENAL FAILURE [None]
